FAERS Safety Report 6278569-4 (Version None)
Quarter: 2009Q3

REPORT INFORMATION
  Report Type: 
  Country: None (occurrence: None)
  Receive Date: 20090722
  Receipt Date: 20081003
  Transmission Date: 20100115
  Serious: No
  Sender: FDA-Public Use
  Company Number: US-BAUSCH-2008BL004277

PATIENT
  Age: 75 Year
  Sex: Female
  Weight: 56 kg

DRUGS (4)
  1. OPCON-A [Suspect]
     Indication: OCULAR HYPERAEMIA
     Route: 047
     Dates: start: 20080921, end: 20080921
  2. OPCON-A [Suspect]
     Route: 047
     Dates: start: 20080928, end: 20080928
  3. OPCON-A [Suspect]
     Route: 047
     Dates: start: 20081001, end: 20081001
  4. SYSTANE [Concomitant]

REACTIONS (1)
  - EYE IRRITATION [None]
